FAERS Safety Report 7988652 (Version 2)
Quarter: 2012Q4

REPORT INFORMATION
  Report Type: 
  Country: CA (occurrence: CA)
  Receive Date: 20110613
  Receipt Date: 20121107
  Transmission Date: 20130627
  Serious: Yes (Death, Hospitalization, Other)
  Sender: FDA-Public Use
  Company Number: PHHO2005CA09307

PATIENT
  Sex: Female

DRUGS (10)
  1. SANDOSTATIN LAR (PATIENT BASIS) [Suspect]
     Indication: HEPATIC NEOPLASM MALIGNANT
     Dosage: 20 mg, every 4 weeks
     Dates: start: 20050124, end: 20051222
  2. LOSEC [Concomitant]
  3. COLACE [Concomitant]
  4. COUMADIN [Concomitant]
  5. DIGOXIN [Concomitant]
  6. GLYBURIDE [Concomitant]
  7. METOPROLOL [Concomitant]
  8. MULTIVITAMINS [Concomitant]
  9. VITAMIN D [Concomitant]
  10. OMEPRAZOLE [Concomitant]

REACTIONS (7)
  - Death [Fatal]
  - Pain [Unknown]
  - Malignant neoplasm progression [Unknown]
  - Injection site reaction [Unknown]
  - Flatulence [Unknown]
  - Dizziness [Unknown]
  - Hypoglycaemia [Unknown]
